FAERS Safety Report 20872305 (Version 3)
Quarter: 2022Q3

REPORT INFORMATION
  Report Type: Spontaneous
  Country: NI (occurrence: NI)
  Receive Date: 20220525
  Receipt Date: 20220715
  Transmission Date: 20221026
  Serious: Yes (Other)
  Sender: FDA-Public Use
  Company Number: NI-NOVARTISPH-NVSC2022NI119318

PATIENT
  Sex: Female
  Weight: 62 kg

DRUGS (1)
  1. ESTRADIOL\NORETHINDRONE ACETATE [Suspect]
     Active Substance: ESTRADIOL\NORETHINDRONE ACETATE
     Indication: Osteoporosis
     Dosage: STRENGTH:30 /95 UG/24 H
     Route: 065
     Dates: start: 2019, end: 202206

REACTIONS (3)
  - Haemorrhage [Recovered/Resolved]
  - Hot flush [Unknown]
  - Product adhesion issue [Unknown]
